FAERS Safety Report 10486205 (Version 1)
Quarter: 2014Q3

REPORT INFORMATION
  Report Type: Spontaneous
  Country: US (occurrence: None)
  Receive Date: 20140908
  Receipt Date: 20140908
  Transmission Date: 20150326
  Serious: Yes (Hospitalization)
  Sender: FDA-Public Use
  Company Number: 410483

PATIENT
  Age: 53 Year
  Sex: Female

DRUGS (9)
  1. VICTOZA [Suspect]
     Active Substance: LIRAGLUTIDE
     Indication: TYPE 2 DIABETES MELLITUS
     Route: 058
     Dates: start: 201308, end: 20140509
  2. METFORMIN [Concomitant]
     Active Substance: METFORMIN HYDROCHLORIDE
  3. LOSARTAN (LOSARTAN) [Concomitant]
     Active Substance: LOSARTAN
  4. SIMVASTATIN (SIMVASTATIN) [Concomitant]
     Active Substance: SIMVASTATIN
  5. REMERON [Suspect]
     Active Substance: MIRTAZAPINE
  6. AMBIEN [Concomitant]
     Active Substance: ZOLPIDEM TARTRATE
  7. BUPROPION (BUPROPION) [Concomitant]
     Active Substance: BUPROPION
  8. RISPERIDONE (RISPERIDONE) [Concomitant]
     Active Substance: RISPERIDONE
  9. PREMARIN (ESTROGENS CONJUGATED) [Concomitant]

REACTIONS (1)
  - Pancreatitis [None]

NARRATIVE: CASE EVENT DATE: 20140508
